FAERS Safety Report 25312442 (Version 1)
Quarter: 2025Q2

REPORT INFORMATION
  Report Type: Spontaneous
  Country: US (occurrence: US)
  Receive Date: 20250514
  Receipt Date: 20250514
  Transmission Date: 20250717
  Serious: No
  Sender: TAIHO ONCOLOGY INC
  Company Number: US-TAIHOP-2025-005108

PATIENT
  Sex: Female

DRUGS (1)
  1. INQOVI [Suspect]
     Active Substance: CEDAZURIDINE\DECITABINE
     Indication: Myelofibrosis
     Dosage: CEDAZURIDINE 100 MG + DECITABINE 35 MG?CYCLE UNKNOWN
     Route: 048

REACTIONS (1)
  - Product use in unapproved indication [Unknown]
